FAERS Safety Report 8264447-8 (Version None)
Quarter: 2012Q2

REPORT INFORMATION
  Report Type: 
  Country: None (occurrence: None)
  Receive Date: 20120406
  Receipt Date: 20120403
  Transmission Date: 20120825
  Serious: Yes (Other)
  Sender: FDA-Public Use
  Company Number: US-PFIZER INC-2012084932

PATIENT
  Age: 60 Year
  Sex: Male

DRUGS (3)
  1. TRAMADOL [Concomitant]
     Indication: PAIN
     Dosage: 60 MG, AS NEEDED
     Dates: end: 20120101
  2. ZYVOX [Suspect]
     Indication: PNEUMONIA
     Dosage: 600 MG, 2X/DAY
     Dates: start: 20120329
  3. TRAZODONE [Concomitant]
     Indication: INSOMNIA
     Dosage: UNK, DAILY
     Dates: end: 20120101

REACTIONS (1)
  - DEAFNESS [None]
